FAERS Safety Report 6376359-5 (Version None)
Quarter: 2009Q3

REPORT INFORMATION
  Report Type: 
  Country: None (occurrence: None)
  Receive Date: 20090922
  Receipt Date: 20090922
  Transmission Date: 20100115
  Serious: Yes (Other)
  Sender: FDA-Public Use
  Company Number: None

PATIENT
  Age: 60 Year
  Sex: Female
  Weight: 75.2971 kg

DRUGS (1)
  1. VYTORIN [Suspect]

REACTIONS (3)
  - BREATH SOUNDS ABNORMAL [None]
  - DYSPNOEA [None]
  - THROAT TIGHTNESS [None]
